FAERS Safety Report 22280634 (Version 7)
Quarter: 2023Q4

REPORT INFORMATION
  Report Type: Report from Study
  Country: US (occurrence: US)
  Receive Date: 20230503
  Receipt Date: 20231213
  Transmission Date: 20240110
  Serious: Yes (Other)
  Sender: FDA-Public Use
  Company Number: US-HORIZON THERAPEUTICS-HZN-2023-003202

PATIENT

DRUGS (14)
  1. KRYSTEXXA [Suspect]
     Active Substance: PEGLOTICASE
     Indication: Gout
     Dosage: 8 MG, EVERY 2 WEEKS (FIRST INFUSION)
     Route: 042
     Dates: start: 20230421
  2. KRYSTEXXA [Suspect]
     Active Substance: PEGLOTICASE
     Dosage: 8 MG, EVERY 2 WEEKS (SECOND INFUSION)
     Route: 042
     Dates: start: 20230508
  3. KRYSTEXXA [Suspect]
     Active Substance: PEGLOTICASE
     Dosage: 8 MG, EVERY 2 WEEKS (UNKNOWN INFUSION
     Route: 042
     Dates: start: 20230522
  4. KRYSTEXXA [Suspect]
     Active Substance: PEGLOTICASE
     Dosage: 8 MG, EVERY 2 WEEKS, INFUSION OVER 120MIN (INCREASED TIME OF 1HR 48MIN FOR 172 REMAINING ML, 10 MINU
     Route: 042
     Dates: start: 2023
  5. KRYSTEXXA [Suspect]
     Active Substance: PEGLOTICASE
     Dosage: 5TH INFUSION UNK
     Route: 042
     Dates: start: 2023
  6. KRYSTEXXA [Suspect]
     Active Substance: PEGLOTICASE
     Dosage: 6TH INFUSION UNK
     Route: 042
     Dates: start: 20230721
  7. KRYSTEXXA [Suspect]
     Active Substance: PEGLOTICASE
     Dosage: 7TH INFUSION
     Route: 042
  8. KRYSTEXXA [Suspect]
     Active Substance: PEGLOTICASE
     Dosage: 8TH INFUSION
     Route: 042
  9. KRYSTEXXA [Suspect]
     Active Substance: PEGLOTICASE
     Dosage: 9TH INFUSION
     Route: 042
  10. KRYSTEXXA [Suspect]
     Active Substance: PEGLOTICASE
     Dosage: 10TH INFUSION
     Route: 042
  11. KRYSTEXXA [Suspect]
     Active Substance: PEGLOTICASE
     Dosage: 11TH INFUSION
     Route: 042
  12. KRYSTEXXA [Suspect]
     Active Substance: PEGLOTICASE
     Dosage: 12TH INFUSION
     Route: 042
  13. UNSPECIFIED INGREDIENT [Suspect]
     Active Substance: UNSPECIFIED INGREDIENT
     Indication: Product used for unknown indication
     Route: 065
  14. SOLU-MEDROL [Suspect]
     Active Substance: METHYLPREDNISOLONE SODIUM SUCCINATE
     Indication: Premedication
     Dosage: FIRST DOSE
     Route: 065

REACTIONS (9)
  - Blood glucose increased [Recovered/Resolved]
  - Blood glucose increased [Unknown]
  - Oropharyngeal discomfort [Recovered/Resolved]
  - Dyskinesia [Recovered/Resolved]
  - Gout [Recovered/Resolved]
  - Incorrect drug administration rate [Unknown]
  - Pain in extremity [Not Recovered/Not Resolved]
  - Pain in extremity [Unknown]
  - Product dose omission issue [Unknown]

NARRATIVE: CASE EVENT DATE: 20230101
